FAERS Safety Report 18766192 (Version 1)
Quarter: 2021Q1

REPORT INFORMATION
  Report Type: Report from Study
  Country: GB (occurrence: GB)
  Receive Date: 20210121
  Receipt Date: 20210121
  Transmission Date: 20210419
  Serious: Yes (Hospitalization)
  Sender: FDA-Public Use
  Company Number: GB-JNJFOC-20210122225

PATIENT
  Age: 74 Year
  Sex: Male

DRUGS (2)
  1. DECAPEPTYL [GONADORELIN] [Suspect]
     Active Substance: GONADORELIN
     Indication: PROSTATE CANCER METASTATIC
     Route: 058
     Dates: start: 20120601
  2. ABIRATERONE ACETATE. [Suspect]
     Active Substance: ABIRATERONE ACETATE
     Indication: PROSTATE CANCER METASTATIC
     Route: 048
     Dates: start: 20121211

REACTIONS (3)
  - Atrial fibrillation [Recovered/Resolved with Sequelae]
  - Ventricular tachycardia [Recovered/Resolved with Sequelae]
  - Syncope [Recovered/Resolved with Sequelae]

NARRATIVE: CASE EVENT DATE: 20200619
